FAERS Safety Report 6640765-1 (Version None)
Quarter: 2010Q1

REPORT INFORMATION
  Report Type: 
  Country: None (occurrence: None)
  Receive Date: 20100318
  Receipt Date: 20100310
  Transmission Date: 20100710
  Serious: Yes (Other)
  Sender: FDA-Public Use
  Company Number: US-PURDUE-USA-2010-0042682

PATIENT
  Sex: Male

DRUGS (3)
  1. OXYCONTIN [Suspect]
     Indication: PAIN
     Dosage: UNK
  2. SEROQUEL [Concomitant]
  3. DILANTIN [Concomitant]

REACTIONS (3)
  - BIPOLAR DISORDER [None]
  - CONSTIPATION [None]
  - CONVULSION [None]
